FAERS Safety Report 9344844 (Version 1)
Quarter: 2013Q2

REPORT INFORMATION
  Report Type: Spontaneous
  Country: US (occurrence: US)
  Receive Date: 20130612
  Receipt Date: 20130612
  Transmission Date: 20140414
  Serious: Yes (Death)
  Sender: FDA-Public Use
  Company Number: US-GLAXOSMITHKLINE-A1026637A

PATIENT
  Age: 67 Year
  Sex: Male

DRUGS (5)
  1. VOTRIENT [Suspect]
     Indication: RENAL CANCER
     Dosage: 800MG PER DAY
     Route: 048
     Dates: start: 20130502
  2. CENTRUM [Concomitant]
  3. OMEPRAZOLE [Concomitant]
  4. ONDANSETRON [Concomitant]
  5. ACETAMINOPHEN [Concomitant]

REACTIONS (1)
  - Death [Fatal]
